FAERS Safety Report 5173756-0 (Version None)
Quarter: 2006Q4

REPORT INFORMATION
  Report Type: 
  Country: None (occurrence: None)
  Receive Date: 20061214
  Receipt Date: 20061204
  Transmission Date: 20070319
  Serious: Yes (Hospitalization)
  Sender: FDA-Public Use
  Company Number: 2006AP05808

PATIENT
  Sex: Male

DRUGS (4)
  1. MERONEM [Suspect]
     Route: 042
     Dates: start: 20061129, end: 20061207
  2. SPORANOX [Concomitant]
  3. CLOXACILLIN SODIUM [Concomitant]
  4. NETELMYCIN [Concomitant]

REACTIONS (5)
  - COMA [None]
  - MYOCARDIAL INFARCTION [None]
  - POOR QUALITY DRUG ADMINISTERED [None]
  - PYREXIA [None]
  - THERAPEUTIC PRODUCT INEFFECTIVE [None]
